FAERS Safety Report 15407796 (Version 5)
Quarter: 2020Q2

REPORT INFORMATION
  Report Type: Report from Study
  Country: GB (occurrence: GB)
  Receive Date: 20180920
  Receipt Date: 20200402
  Transmission Date: 20200713
  Serious: Yes (Hospitalization)
  Sender: FDA-Public Use
  Company Number: GB-PFIZER INC-2018374144

PATIENT
  Sex: Female

DRUGS (38)
  1. TRASTUZUMAB. [Suspect]
     Active Substance: TRASTUZUMAB
     Dosage: 399 MG, EVERY 3 WEEKS
     Route: 042
     Dates: start: 20150203, end: 20150203
  2. DEXAMETHASONE. [Concomitant]
     Active Substance: DEXAMETHASONE
     Dosage: 8 MG (0.5 DAY) (PREVIOUSLY 16MG 1XDAY)
     Route: 048
     Dates: start: 20150524, end: 20150708
  3. ZOMETA [Concomitant]
     Active Substance: ZOLEDRONIC ACID
     Dosage: 3 MG, UNK
     Route: 042
     Dates: start: 20151111
  4. FYBOGEL [Concomitant]
     Active Substance: PLANTAGO OVATA SEED
     Dosage: 3.5 G, UNK
     Route: 048
     Dates: start: 20150314
  5. METOCLOPRAMIDE. [Concomitant]
     Active Substance: METOCLOPRAMIDE
     Dosage: 10MG (0.33DAY)(PREVIOUSLY30MG, 1XDAY)
     Route: 048
     Dates: start: 20170510, end: 2017
  6. TRASTUZUMAB. [Suspect]
     Active Substance: TRASTUZUMAB
     Dosage: 420 MG, EVERY 3 WEEKS
     Route: 042
     Dates: start: 20160427, end: 20170111
  7. NAPROXEN. [Concomitant]
     Active Substance: NAPROXEN
     Dosage: 250 MG, AS NEEDED
     Route: 048
     Dates: start: 20170802
  8. AMOXICILLIN. [Concomitant]
     Active Substance: AMOXICILLIN
     Dosage: 500MG (0.33DAY)(PREVIOUSLY 1500 MG, 1X/DAY)
     Route: 048
     Dates: start: 20160817, end: 20160821
  9. ADCAL D3 [Concomitant]
     Active Substance: CALCIUM CARBONATE\CHOLECALCIFEROL
     Dosage: 1.5 (0.33DAY)(PREVIOUSLY 4.5G, 1X/DAY)
     Route: 048
     Dates: start: 20151203
  10. METOCLOPRAMIDE. [Concomitant]
     Active Substance: METOCLOPRAMIDE
     Dosage: 10MG (0.33 DAY)(PREVIOUSLY 30MG, 1XDAY)
     Route: 050
     Dates: start: 20150527, end: 20150708
  11. PERTUZUMAB. [Suspect]
     Active Substance: PERTUZUMAB
     Dosage: 840 MG SINGLE, LOADING DOSE
     Route: 042
     Dates: start: 20150209, end: 20150209
  12. DEXAMETHASONE. [Concomitant]
     Active Substance: DEXAMETHASONE
     Dosage: 4MG (0.5DAY) (PREVIOUSLY 8 MG, 1X/DAY)
     Route: 048
     Dates: start: 20170616, end: 20170619
  13. DEXAMETHASONE. [Concomitant]
     Active Substance: DEXAMETHASONE
     Dosage: 8MG (0.5DAY) (PREVIOUSLY16 MG, 1X/DAY)
     Route: 048
     Dates: start: 20170616, end: 20170617
  14. AMOXICILLIN. [Concomitant]
     Active Substance: AMOXICILLIN
     Dosage: 500MG (0.33DAY)(PREVIOUSLY1500 MG, 1X/DAY)
     Route: 048
     Dates: start: 20161016
  15. ONDANSETRON [Concomitant]
     Active Substance: ONDANSETRON
     Dosage: 8MG (0.5DAY) (PREVIOUSLY 16 MG, 1X/DAY)
     Route: 042
     Dates: start: 20150527, end: 20150608
  16. DOCETAXEL. [Suspect]
     Active Substance: DOCETAXEL
     Dosage: 130 MG, EVERY 3 WEEKS
     Route: 042
     Dates: start: 20150210, end: 20150708
  17. TRASTUZUMAB. [Suspect]
     Active Substance: TRASTUZUMAB
     Dosage: 504 MG SINGLE, LOADING DOSE
     Route: 042
     Dates: start: 20150209, end: 20150209
  18. TRASTUZUMAB. [Suspect]
     Active Substance: TRASTUZUMAB
     Dosage: 378 MG, EVERY 3 WEEKS
     Route: 042
     Dates: start: 20151222, end: 20160113
  19. NAPROXEN. [Concomitant]
     Active Substance: NAPROXEN
     Dosage: 250 MG, 1X/DAY
     Route: 048
     Dates: start: 20170116, end: 20170116
  20. OMEPRAZOLE. [Concomitant]
     Active Substance: OMEPRAZOLE
     Dosage: 20 MG, 1X/DAY
     Route: 060
     Dates: start: 20170616, end: 20170621
  21. PERTUZUMAB. [Suspect]
     Active Substance: PERTUZUMAB
     Dosage: 420 MG, EVERY 3 WEEKS MAINTENANCE DOSE
     Route: 042
  22. TRASTUZUMAB. [Suspect]
     Active Substance: TRASTUZUMAB
     Dosage: 399 MG, EVERY 3 WEEKS
     Route: 042
     Dates: start: 20151111, end: 20151202
  23. DEXAMETHASONE. [Concomitant]
     Active Substance: DEXAMETHASONE
     Dosage: 4 MG, 1X/DAY
     Route: 048
     Dates: start: 20170531, end: 20170602
  24. NAPROXEN. [Concomitant]
     Active Substance: NAPROXEN
     Dosage: 250 MG, AS NEEDED
     Route: 048
  25. AMOXICILLIN. [Concomitant]
     Active Substance: AMOXICILLIN
     Dosage: 500MG (0.33DAY)(PREVIOUSLY1500 MG, 1X/DAY)
     Route: 048
     Dates: start: 20170821, end: 20170826
  26. PEGFILGRASTIM [Concomitant]
     Active Substance: PEGFILGRASTIM
     Dosage: 6 MG, UNK
     Route: 058
     Dates: start: 20150211, end: 20150709
  27. LETROZOLE. [Suspect]
     Active Substance: LETROZOLE
     Dosage: 2.5 MG, 1X/DAY
     Route: 048
     Dates: start: 20150729
  28. TRASTUZUMAB. [Suspect]
     Active Substance: TRASTUZUMAB
     Dosage: 240 MG, UNK
     Route: 042
     Dates: start: 20170201
  29. LANSOPRAZOLE. [Concomitant]
     Active Substance: LANSOPRAZOLE
     Dosage: 30 MG, 1X/DAY
     Route: 048
     Dates: start: 20151123
  30. ADCAL D3 [Concomitant]
     Active Substance: CALCIUM CARBONATE\CHOLECALCIFEROL
     Dosage: 1.5 (0.5DAY)(PREVIOUSLY 3G, 1X/DAY)
     Route: 048
     Dates: start: 20150729, end: 20151202
  31. TRASTUZUMAB EMTANSINE [Suspect]
     Active Substance: ADO-TRASTUZUMAB EMTANSINE
     Dosage: UNK
     Route: 042
  32. TRASTUZUMAB. [Suspect]
     Active Substance: TRASTUZUMAB
     Dosage: 378 MG EVERY 3 WEEKS, MAINTENANCE DOSE
     Route: 042
     Dates: start: 20150303, end: 20151021
  33. SUDAFED NASAL DECONGESTANT MAXIMUM STRENGTH [Concomitant]
     Active Substance: PSEUDOEPHEDRINE HYDROCHLORIDE
     Dosage: 60 MG, AS NEEDED
     Route: 048
     Dates: start: 20160113
  34. TRASTUZUMAB. [Suspect]
     Active Substance: TRASTUZUMAB
     Dosage: 378 MG, EVERY 3 WEEKS
     Route: 042
     Dates: start: 20160224, end: 20160406
  35. DEXAMETHASONE. [Concomitant]
     Active Substance: DEXAMETHASONE
     Dosage: 2 MG (0.5 DAY) (PREVIOUSLY4 MG, 1X/DAY)
     Route: 048
     Dates: start: 20170620, end: 20170621
  36. DEXAMETHASONE. [Concomitant]
     Active Substance: DEXAMETHASONE
     Dosage: 2 MG, 1X/DAY
     Route: 048
     Dates: start: 20170603, end: 20170604
  37. OMEPRAZOLE. [Concomitant]
     Active Substance: OMEPRAZOLE
     Dosage: 20MG (0.5DAY) (PREVIOUSLY40 MG, 1X/DAY)
     Route: 048
     Dates: start: 20170531, end: 20170605
  38. FUCIBET [Concomitant]
     Dosage: 0.1 %, AS NEEDED
     Route: 061
     Dates: start: 20151123

REACTIONS (6)
  - Blood calcium decreased [Recovered/Resolved]
  - Tooth infection [Recovered/Resolved]
  - Onychomadesis [Not Recovered/Not Resolved]
  - Tooth abscess [Not Recovered/Not Resolved]
  - Tooth abscess [Recovered/Resolved]
  - Tooth loss [Recovered/Resolved]

NARRATIVE: CASE EVENT DATE: 20150619
